FAERS Safety Report 8118352-8 (Version None)
Quarter: 2012Q1

REPORT INFORMATION
  Report Type: 
  Country: None (occurrence: None)
  Receive Date: 20120207
  Receipt Date: 20120201
  Transmission Date: 20120608
  Serious: Yes (Hospitalization)
  Sender: FDA-Public Use
  Company Number: BR-PFIZER INC-2012029059

PATIENT
  Age: 64 Year
  Sex: Female
  Weight: 67 kg

DRUGS (4)
  1. SUTENT [Suspect]
     Indication: RENAL CANCER
     Dosage: 50 MG, CYCLIC (4X2)
     Route: 048
     Dates: start: 20120126
  2. OMEPRAZOLE [Concomitant]
     Dosage: UNK
  3. DIGESAN [Concomitant]
     Dosage: UNK
  4. SUTENT [Suspect]
     Indication: METASTASES TO SPINE

REACTIONS (6)
  - ABDOMINAL PAIN [None]
  - CONSTIPATION [None]
  - BONE PAIN [None]
  - CONVULSION [None]
  - BLOOD PRESSURE FLUCTUATION [None]
  - BLOOD PRESSURE INCREASED [None]
